FAERS Safety Report 23276620 (Version 1)
Quarter: 2023Q4

REPORT INFORMATION
  Report Type: Spontaneous
  Country: US (occurrence: US)
  Receive Date: 20231208
  Receipt Date: 20231208
  Transmission Date: 20240109
  Serious: Yes (Disabling, Other)
  Sender: FDA-Public Use
  Company Number: US-SA-2021SA257555

PATIENT
  Age: 75 Year
  Sex: Female
  Weight: 52.7 kg

DRUGS (1)
  1. GOLD BOND MEDICATED ORIGINAL STRENGTH BODY [Suspect]
     Active Substance: MENTHOL
     Indication: Product used for unknown indication
     Route: 065

REACTIONS (6)
  - Pleural mesothelioma malignant [Unknown]
  - Deformity [Unknown]
  - Impaired work ability [Unknown]
  - Anxiety [Unknown]
  - Pain [Unknown]
  - Exposure to chemical pollution [Unknown]
